FAERS Safety Report 10770699 (Version 1)
Quarter: 2015Q1

REPORT INFORMATION
  Report Type: Spontaneous
  Country: US (occurrence: None)
  Receive Date: 20150204
  Receipt Date: 20150204
  Transmission Date: 20150721
  Serious: Yes (Death)
  Sender: FDA-Public Use
  Company Number: 2723156

PATIENT
  Age: 58 Year
  Sex: Male

DRUGS (6)
  1. DIPHENHYDRAMINE [Suspect]
     Active Substance: DIPHENHYDRAMINE
  2. METHAMPHETAMINE [Suspect]
     Active Substance: METHAMPHETAMINE
  3. DEXTROMETHORPHAN [Suspect]
     Active Substance: DEXTROMETHORPHAN
  4. ETHANOL [Suspect]
     Active Substance: ALCOHOL
  5. QUININE [Suspect]
     Active Substance: QUININE
  6. HEROIN [Suspect]
     Active Substance: DIACETYLMORPHINE

REACTIONS (2)
  - Poisoning [None]
  - Drug abuse [None]

NARRATIVE: CASE EVENT DATE: 2013
